FAERS Safety Report 25370117 (Version 3)
Quarter: 2025Q2

REPORT INFORMATION
  Report Type: Report from Study
  Country: US (occurrence: US)
  Receive Date: 20250528
  Receipt Date: 20250627
  Transmission Date: 20250717
  Serious: Yes (Other)
  Sender: MALLINCKRODT
  Company Number: US-MALLINCKRODT-MNK202503045

PATIENT
  Age: 33 Year
  Sex: Female

DRUGS (1)
  1. CORTICOTROPIN [Suspect]
     Active Substance: CORTICOTROPIN
     Indication: Product used for unknown indication
     Route: 058

REACTIONS (4)
  - Sarcoidosis [Not Recovered/Not Resolved]
  - Disease progression [Not Recovered/Not Resolved]
  - Immune system disorder [Unknown]
  - Liver function test increased [Unknown]
